FAERS Safety Report 8550375-7 (Version None)
Quarter: 2012Q3

REPORT INFORMATION
  Report Type: 
  Country: None (occurrence: None)
  Receive Date: 20120730
  Receipt Date: 20120717
  Transmission Date: 20120928
  Serious: Yes (Hospitalization)
  Sender: FDA-Public Use
  Company Number: US-ELI_LILLY_AND_COMPANY-US201207006055

PATIENT
  Sex: Male

DRUGS (2)
  1. HUMALOG [Suspect]
     Indication: TYPE 1 DIABETES MELLITUS
     Dosage: UNK, PRN
     Dates: start: 20070101
  2. HUMALOG [Suspect]
     Dosage: UNK, PRN
     Dates: end: 20070101

REACTIONS (2)
  - CORONARY ARTERIAL STENT INSERTION [None]
  - VISUAL IMPAIRMENT [None]
